FAERS Safety Report 6516488-6 (Version None)
Quarter: 2009Q4

REPORT INFORMATION
  Report Type: 
  Country: None (occurrence: None)
  Receive Date: 20091223
  Receipt Date: 20091208
  Transmission Date: 20100525
  Serious: Yes (Death, Life-Threatening)
  Sender: FDA-Public Use
  Company Number: US-PFIZER INC-2009301214

PATIENT
  Sex: Male
  Weight: 103.4 kg

DRUGS (11)
  1. IDARUBICIN HCL [Suspect]
     Indication: ACUTE MYELOID LEUKAEMIA
     Dosage: 12 MG/M2, UNK
     Route: 042
     Dates: start: 20091009
  2. CYTARABINE [Suspect]
     Indication: ACUTE MYELOID LEUKAEMIA
     Dosage: 1.5 DF, UNK
     Route: 042
     Dates: start: 20091009
  3. NOVOLOG [Concomitant]
     Dosage: UNK
     Dates: start: 20091101
  4. ACYCLOVIR [Concomitant]
     Dosage: UNK
     Dates: start: 20091005
  5. AZTREONAM [Concomitant]
     Dosage: UNK
     Dates: start: 20091018
  6. OXYGEN [Concomitant]
  7. VANCOMYCIN [Concomitant]
     Dosage: UNK
     Dates: start: 20091019
  8. VORICONAZOLE [Concomitant]
     Dosage: UNK
     Dates: start: 20091029
  9. LASIX [Concomitant]
     Dosage: UNK
     Dates: start: 20091031
  10. PANTOPRAZOLE [Concomitant]
     Dosage: UNK
     Dates: start: 20091005
  11. FILGRASTIM [Concomitant]
     Dosage: UNK
     Dates: start: 20091102

REACTIONS (2)
  - HAEMORRHAGIC STROKE [None]
  - RESPIRATORY FAILURE [None]
